FAERS Safety Report 20608269 (Version 2)
Quarter: 2022Q1

REPORT INFORMATION
  Report Type: Spontaneous
  Country: US (occurrence: US)
  Receive Date: 20220317
  Receipt Date: 20220318
  Transmission Date: 20220423
  Serious: No
  Sender: FDA-Public Use
  Company Number: US-ELI_LILLY_AND_COMPANY-US202203001006

PATIENT
  Sex: Male

DRUGS (2)
  1. HUMALOG [Suspect]
     Active Substance: INSULIN LISPRO
     Indication: Type 1 diabetes mellitus
     Dosage: 4 U, TID
     Route: 058
     Dates: start: 2012
  2. HUMALOG [Suspect]
     Active Substance: INSULIN LISPRO
     Dosage: 17 U, TID (16-17 U)
     Route: 058
     Dates: start: 20220224

REACTIONS (3)
  - Glycosylated haemoglobin increased [Unknown]
  - Drug ineffective [Recovered/Resolved]
  - Blood glucose increased [Recovered/Resolved]
